FAERS Safety Report 19062100 (Version 1)
Quarter: 2021Q1

REPORT INFORMATION
  Report Type: Spontaneous
  Country: US (occurrence: US)
  Receive Date: 20210325
  Receipt Date: 20210325
  Transmission Date: 20210420
  Serious: Yes (Disabling)
  Sender: FDA-Public Use
  Company Number: None

PATIENT
  Age: 61 Year
  Sex: Female
  Weight: 83.25 kg

DRUGS (2)
  1. SERTRALINE [Suspect]
     Active Substance: SERTRALINE HYDROCHLORIDE
     Indication: ANXIETY
     Route: 048
  2. SERTRALINE [Suspect]
     Active Substance: SERTRALINE HYDROCHLORIDE
     Indication: POST-TRAUMATIC STRESS DISORDER
     Route: 048

REACTIONS (11)
  - Diarrhoea [None]
  - Insomnia [None]
  - Suicidal ideation [None]
  - Abdominal pain upper [None]
  - Fatigue [None]
  - Fear [None]
  - Dizziness [None]
  - Nausea [None]
  - Muscle twitching [None]
  - Hypoaesthesia [None]
  - Vertigo [None]

NARRATIVE: CASE EVENT DATE: 20170611
